FAERS Safety Report 4963004-6 (Version None)
Quarter: 2006Q1

REPORT INFORMATION
  Report Type: 
  Country: None (occurrence: None)
  Receive Date: 20060331
  Receipt Date: 20060330
  Transmission Date: 20060701
  Serious: Yes (Hospitalization)
  Sender: FDA-Public Use
  Company Number: S06-USA-01066-02

PATIENT
  Sex: Female

DRUGS (2)
  1. CELEXA [Suspect]
     Dosage: 20 MG QD TRANSPLACENTAL
     Route: 064
     Dates: end: 20050929
  2. CELEXA [Suspect]
     Dosage: 20 MG QD BF
     Dates: start: 20050929

REACTIONS (12)
  - APGAR SCORE LOW [None]
  - COOMBS TEST POSITIVE [None]
  - DRUG EXPOSURE DURING PREGNANCY [None]
  - HYPOTONIA NEONATAL [None]
  - JAUNDICE NEONATAL [None]
  - MEAN ARTERIAL PRESSURE DECREASED [None]
  - NEONATAL ASPIRATION [None]
  - NEONATAL DISORDER [None]
  - NEONATAL PNEUMONIA [None]
  - NEONATAL RESPIRATORY DEPRESSION [None]
  - NEONATAL TACHYPNOEA [None]
  - PERIPHERAL VASCULAR DISORDER [None]
